FAERS Safety Report 24457897 (Version 1)
Quarter: 2024Q4

REPORT INFORMATION
  Report Type: Report from Study
  Country: US (occurrence: US)
  Receive Date: 20241018
  Receipt Date: 20241018
  Transmission Date: 20250115
  Serious: No
  Sender: ROCHE
  Company Number: US-ROCHE-3437916

PATIENT
  Age: 36 Year

DRUGS (6)
  1. ACTIVASE [Suspect]
     Active Substance: ALTEPLASE
     Indication: Cerebral infarction
     Dosage: DATE OF  SERVICE 17/SEP/2023
     Route: 040
  2. ACTIVASE [Suspect]
     Active Substance: ALTEPLASE
     Indication: Cerebral artery stenosis
     Route: 065
  3. ACTIVASE [Suspect]
     Active Substance: ALTEPLASE
     Indication: Hemiplegia
  4. ACTIVASE [Suspect]
     Active Substance: ALTEPLASE
     Indication: Acute kidney injury
  5. ACTIVASE [Suspect]
     Active Substance: ALTEPLASE
     Indication: Hypertensive emergency
  6. ACTIVASE [Suspect]
     Active Substance: ALTEPLASE
     Indication: Aphasia

REACTIONS (2)
  - Off label use [Unknown]
  - No adverse event [Unknown]
